FAERS Safety Report 8156011-6 (Version None)
Quarter: 2012Q1

REPORT INFORMATION
  Report Type: 
  Country: None (occurrence: None)
  Receive Date: 20120221
  Receipt Date: 20120221
  Transmission Date: 20120608
  Serious: Yes (Hospitalization)
  Sender: FDA-Public Use
  Company Number: None

PATIENT
  Age: 55 Year
  Sex: Male

DRUGS (3)
  1. PACEMAKER [Concomitant]
  2. CARVEDILOL [Concomitant]
  3. ENALAPRIL MALEATE [Suspect]
     Indication: HYPERTENSION
     Dosage: 1 TAB BY MOUTH DAILY
     Route: 048
     Dates: start: 20120202, end: 20120209

REACTIONS (5)
  - EAR DISCOMFORT [None]
  - DIZZINESS [None]
  - LOSS OF CONSCIOUSNESS [None]
  - PRODUCT SUBSTITUTION ISSUE [None]
  - HEADACHE [None]
